FAERS Safety Report 8087992-7 (Version None)
Quarter: 2012Q1

REPORT INFORMATION
  Report Type: 
  Country: None (occurrence: None)
  Receive Date: 20120131
  Receipt Date: 20120123
  Transmission Date: 20120608
  Serious: Yes (Hospitalization)
  Sender: FDA-Public Use
  Company Number: US-AMGEN-USASP2012004680

PATIENT
  Age: 61 Year
  Sex: Male

DRUGS (1)
  1. ENBREL [Suspect]
     Indication: RHEUMATOID ARTHRITIS
     Dosage: 50 MG, QWK
     Dates: start: 20011101, end: 20110801

REACTIONS (5)
  - SMALL CELL LUNG CANCER STAGE UNSPECIFIED [None]
  - INJECTION SITE VESICLES [None]
  - LUNG LOBECTOMY [None]
  - GAIT DISTURBANCE [None]
  - RHEUMATOID ARTHRITIS [None]
